FAERS Safety Report 4595119-9 (Version None)
Quarter: 2005Q1

REPORT INFORMATION
  Report Type: 
  Country: None (occurrence: None)
  Receive Date: 20050224
  Receipt Date: 20031201
  Transmission Date: 20050727
  Serious: Yes (Hospitalization)
  Sender: FDA-Public Use
  Company Number: GXKR2003AT00617

PATIENT
  Age: 50 Year
  Sex: Male

DRUGS (3)
  1. CIPROFLOXACIN [Suspect]
     Indication: PNEUMONIA ASPIRATION
  2. PIPERACILLIN+TAZOBACTAM) (NGX) (PIPERACILLIN, TAZOBACTAM) UNKNOWN [Suspect]
     Indication: PNEUMONIA ASPIRATION
  3. CEFPIROME [Concomitant]

REACTIONS (2)
  - DRUG INTERACTION [None]
  - THROMBOCYTHAEMIA [None]
